FAERS Safety Report 11323392 (Version 1)
Quarter: 2015Q3

REPORT INFORMATION
  Report Type: Report from Study
  Country: DE (occurrence: DE)
  Receive Date: 20150730
  Receipt Date: 20150730
  Transmission Date: 20151125
  Serious: Yes (Hospitalization)
  Sender: FDA-Public Use
  Company Number: DE-BEH-2015052552

PATIENT
  Age: 74 Year
  Sex: Male
  Weight: 126 kg

DRUGS (8)
  1. PRIVIGEN [Suspect]
     Active Substance: HUMAN IMMUNOGLOBULIN G
     Indication: SECONDARY IMMUNODEFICIENCY
     Dosage: INFUSION RATE: ACCORDING TO INFUSION SCHEME - 1.2 ML/MIN - 9 ML/MIN
     Route: 042
     Dates: start: 20150602, end: 20150602
  2. ENZYME INHIBITORS [Concomitant]
     Active Substance: UNSPECIFIED INGREDIENT
     Indication: CHRONIC LYMPHOCYTIC LEUKAEMIA
     Dosage: START DATE: ??-NOV-2014, DOSAGE: 1-1-1
     Route: 048
  3. GABAPENTIN. [Concomitant]
     Active Substance: GABAPENTIN
  4. ANTITHROMBOTIC AGENTS [Concomitant]
     Active Substance: UNSPECIFIED INGREDIENT
  5. PRIVIGEN [Suspect]
     Active Substance: HUMAN IMMUNOGLOBULIN G
     Indication: INFECTION
     Dosage: INFUSION RATE: ACCORDING TO INFUSION SCHEME - 1.2 ML/MIN - 9 ML/MIN
     Route: 042
     Dates: start: 20150602, end: 20150602
  6. INSULIN [Concomitant]
     Active Substance: INSULIN NOS
  7. PRIVIGEN [Suspect]
     Active Substance: HUMAN IMMUNOGLOBULIN G
     Indication: CHRONIC LYMPHOCYTIC LEUKAEMIA
     Dosage: INFUSION RATE: ACCORDING TO INFUSION SCHEME - 1.2 ML/MIN - 9 ML/MIN
     Route: 042
     Dates: start: 20150602, end: 20150602
  8. METFORMIN [Concomitant]
     Active Substance: METFORMIN HYDROCHLORIDE

REACTIONS (3)
  - Angina pectoris [Recovered/Resolved]
  - Atrial fibrillation [Recovered/Resolved]
  - Myocardial ischaemia [Recovered/Resolved]

NARRATIVE: CASE EVENT DATE: 20150609
